FAERS Safety Report 13209087 (Version 1)
Quarter: 2017Q1

REPORT INFORMATION
  Report Type: Spontaneous
  Country: GB (occurrence: GB)
  Receive Date: 20170209
  Receipt Date: 20170209
  Transmission Date: 20170428
  Serious: Yes (Hospitalization, Other)
  Sender: FDA-Public Use
  Company Number: GB-JNJFOC-20170208144

PATIENT
  Age: 77 Year
  Weight: 85 kg

DRUGS (1)
  1. XARELTO [Suspect]
     Active Substance: RIVAROXABAN
     Indication: PORTAL VEIN THROMBOSIS
     Route: 048
     Dates: start: 20161225, end: 20170126

REACTIONS (5)
  - Duodenal ulcer [Unknown]
  - Anaemia [Unknown]
  - Upper gastrointestinal haemorrhage [Recovered/Resolved]
  - Melaena [Unknown]
  - Hypotension [Unknown]

NARRATIVE: CASE EVENT DATE: 20170126
